FAERS Safety Report 4433040-7 (Version None)
Quarter: 2004Q3

REPORT INFORMATION
  Report Type: 
  Country: None (occurrence: None)
  Receive Date: 20040721
  Receipt Date: 20030805
  Transmission Date: 20050211
  Serious: Yes (Disabling)
  Sender: FDA-Public Use
  Company Number: WAES 0308USA00477

PATIENT
  Age: 51 Year
  Sex: Female
  Weight: 58.9676 kg

DRUGS (8)
  1. VIOXX [Suspect]
     Indication: ARTHRALGIA
     Dosage: 25 MG/DAILY/PO
     Route: 048
     Dates: start: 20020114
  2. VIOXX [Suspect]
     Indication: FIBROMYALGIA
     Dosage: 25 MG/DAILY/PO
     Route: 048
     Dates: start: 20020114
  3. ACIPHEX [Concomitant]
  4. DIOVAN [Concomitant]
  5. GLUCOPHAGE [Concomitant]
  6. PAXIL [Concomitant]
  7. PRAVACHOL [Concomitant]
  8. RITALIN [Concomitant]

REACTIONS (1)
  - PEPTIC ULCER [None]
